FAERS Safety Report 8514178-1 (Version None)
Quarter: 2012Q3

REPORT INFORMATION
  Report Type: 
  Country: None (occurrence: None)
  Receive Date: 20120717
  Receipt Date: 20120622
  Transmission Date: 20120928
  Serious: Yes (Other)
  Sender: FDA-Public Use
  Company Number: JP-009507513-1207JPN004211

PATIENT

DRUGS (11)
  1. CYMBALTA [Suspect]
     Route: 048
     Dates: start: 20110929, end: 20120416
  2. CYMBALTA [Suspect]
     Route: 048
     Dates: start: 20110901, end: 20110928
  3. ETICALM [Suspect]
     Indication: INSOMNIA
     Route: 048
     Dates: start: 20080417, end: 20120416
  4. REMERON [Suspect]
     Indication: DEPRESSED MOOD
     Route: 048
     Dates: start: 20111124, end: 20120328
  5. SEROQUEL [Suspect]
     Route: 048
     Dates: start: 20110407, end: 20120416
  6. ROHYPNOL [Suspect]
     Indication: INSOMNIA
     Route: 048
     Dates: start: 20080417, end: 20120416
  7. HALCION [Suspect]
     Indication: INSOMNIA
     Route: 048
     Dates: start: 20080417, end: 20120416
  8. CYMBALTA [Suspect]
     Route: 048
     Dates: start: 20110630, end: 20110831
  9. REMERON [Suspect]
     Route: 048
     Dates: start: 20120329, end: 20120416
  10. SEROQUEL [Suspect]
     Indication: INSOMNIA
     Route: 048
     Dates: start: 20080417, end: 20110406
  11. CYMBALTA [Suspect]
     Indication: DEPRESSED MOOD
     Route: 048
     Dates: start: 20110602, end: 20110629

REACTIONS (3)
  - HEPATIC FUNCTION ABNORMAL [None]
  - RENAL IMPAIRMENT [None]
  - BLOOD CREATINE PHOSPHOKINASE INCREASED [None]
